FAERS Safety Report 12968109 (Version 2)
Quarter: 2016Q4

REPORT INFORMATION
  Report Type: Spontaneous
  Country: US (occurrence: US)
  Receive Date: 20161123
  Receipt Date: 20161201
  Transmission Date: 20170207
  Serious: Yes (Hospitalization, Other)
  Sender: FDA-Public Use
  Company Number: US-DRREDDYS-USA/USA/16/0085006

PATIENT
  Age: 74 Year
  Sex: Male

DRUGS (2)
  1. TACROLIMUS. [Suspect]
     Active Substance: TACROLIMUS
     Indication: IMMUNOSUPPRESSION
     Route: 065
  2. MYCOPHENOLATE MOFETIL. [Concomitant]
     Active Substance: MYCOPHENOLATE MOFETIL
     Indication: IMMUNOSUPPRESSION
     Route: 065

REACTIONS (7)
  - Tongue ulceration [Recovering/Resolving]
  - Toxicity to various agents [Recovering/Resolving]
  - Pathergy reaction [Recovering/Resolving]
  - Behcet^s syndrome [Recovering/Resolving]
  - Gastrointestinal ulcer [Recovering/Resolving]
  - Odynophagia [Recovering/Resolving]
  - Weight decreased [Unknown]
